FAERS Safety Report 9668194 (Version 1)
Quarter: 2013Q4

REPORT INFORMATION
  Report Type: Spontaneous
  Country: US (occurrence: US)
  Receive Date: 20131104
  Receipt Date: 20131104
  Transmission Date: 20140711
  Serious: Yes (Hospitalization)
  Sender: FDA-Public Use
  Company Number: US-BAXTER-2013BAX042684

PATIENT
  Sex: Female

DRUGS (3)
  1. DIANEAL LOW CALCIUM [Suspect]
     Indication: RENAL FAILURE CHRONIC
     Route: 033
     Dates: start: 20130325
  2. DIANEAL LOW CALCIUM [Suspect]
     Indication: FLUID OVERLOAD
     Route: 033
     Dates: start: 20130325
  3. DIANEAL LOW CALCIUM [Suspect]
     Route: 033
     Dates: start: 20130325

REACTIONS (3)
  - Gangrene [Recovered/Resolved]
  - Tibia fracture [Recovered/Resolved]
  - Fall [Recovered/Resolved]
